FAERS Safety Report 12417745 (Version 1)
Quarter: 2016Q2

REPORT INFORMATION
  Report Type: Spontaneous
  Country: US (occurrence: US)
  Receive Date: 20160530
  Receipt Date: 20160530
  Transmission Date: 20160815
  Serious: No
  Sender: FDA-Public Use
  Company Number: US-BIOGEN-2016BI00220194

PATIENT
  Age: 52 Year
  Sex: Male

DRUGS (1)
  1. TYSABRI [Suspect]
     Active Substance: NATALIZUMAB
     Indication: MULTIPLE SCLEROSIS
     Route: 042
     Dates: start: 20080723

REACTIONS (9)
  - General symptom [Not Recovered/Not Resolved]
  - Hypoaesthesia [Unknown]
  - Mood swings [Unknown]
  - Mental impairment [Unknown]
  - Gait disturbance [Not Recovered/Not Resolved]
  - Multiple sclerosis relapse [Unknown]
  - Feeling abnormal [Not Recovered/Not Resolved]
  - Pyrexia [Unknown]
  - Pain in jaw [Unknown]

NARRATIVE: CASE EVENT DATE: 201510
